FAERS Safety Report 8197646-4 (Version None)
Quarter: 2012Q1

REPORT INFORMATION
  Report Type: 
  Country: None (occurrence: None)
  Receive Date: 20120309
  Receipt Date: 20120305
  Transmission Date: 20120608
  Serious: Yes (Hospitalization)
  Sender: FDA-Public Use
  Company Number: JP-B.I. PHARMACEUTICALS,INC./RIDGEFIELD-2012-BP-03500NB

PATIENT
  Age: 91 Year
  Sex: Female

DRUGS (5)
  1. PRADAXA [Suspect]
     Indication: ATRIAL FIBRILLATION
     Dosage: 150 MG
     Route: 048
     Dates: start: 20110428, end: 20120217
  2. FUROSEMIDE [Concomitant]
     Indication: CARDIAC FAILURE
     Dosage: 40 MG
     Route: 048
  3. CARVEDILOL [Concomitant]
     Dosage: 5 MG
     Route: 048
  4. CANDESARTAN CILEXETIL [Concomitant]
     Dosage: 12 MG
     Route: 048
  5. EPLERENONE [Concomitant]
     Dosage: 25 MG
     Route: 048

REACTIONS (2)
  - DRUG INEFFECTIVE [None]
  - CEREBRAL INFARCTION [None]
